FAERS Safety Report 18753961 (Version 2)
Quarter: 2021Q1

REPORT INFORMATION
  Report Type: Report from Study
  Country: None (occurrence: BR)
  Receive Date: 20210119
  Receipt Date: 20210302
  Transmission Date: 20210419
  Serious: Yes (Disabling, Other)
  Sender: FDA-Public Use
  Company Number: BR-ABBVIE-21K-020-3730070-00

PATIENT
  Age: 30 Year
  Sex: Male
  Weight: 105 kg

DRUGS (6)
  1. OMEGA 3 [Concomitant]
     Active Substance: OMEGA-3 FATTY ACIDS
     Indication: PRODUCT USED FOR UNKNOWN INDICATION
  2. PAROXETINE. [Suspect]
     Active Substance: PAROXETINE
     Indication: DEPRESSION
     Route: 065
  3. HUMIRA [Suspect]
     Active Substance: ADALIMUMAB
     Route: 058
  4. HUMIRA [Suspect]
     Active Substance: ADALIMUMAB
     Indication: ANKYLOSING SPONDYLITIS
     Route: 058
  5. TRYPTOPHAN [Concomitant]
     Active Substance: TRYPTOPHAN
     Indication: INSOMNIA
  6. NAPROXEN. [Concomitant]
     Active Substance: NAPROXEN
     Indication: PRODUCT USED FOR UNKNOWN INDICATION

REACTIONS (21)
  - Unevaluable event [Unknown]
  - Hallucination [Unknown]
  - Burning sensation [Unknown]
  - Arthralgia [Unknown]
  - Therapeutic product effect decreased [Unknown]
  - Cartilage atrophy [Unknown]
  - Feeling abnormal [Unknown]
  - Joint stiffness [Unknown]
  - Musculoskeletal stiffness [Recovered/Resolved]
  - Pain in extremity [Unknown]
  - Crepitations [Unknown]
  - Exercise tolerance decreased [Unknown]
  - Gastric cancer [Unknown]
  - Back pain [Unknown]
  - Intentional product misuse [Unknown]
  - Pain [Not Recovered/Not Resolved]
  - Bone pain [Unknown]
  - Weight bearing difficulty [Unknown]
  - Irritability [Unknown]
  - Muscular weakness [Unknown]
  - Headache [Unknown]

NARRATIVE: CASE EVENT DATE: 20210101
